FAERS Safety Report 8766832 (Version 1)
Quarter: 2012Q4

REPORT INFORMATION
  Report Type: 
  Country: DK (occurrence: GB)
  Receive Date: 20120904
  Receipt Date: 20120904
  Transmission Date: 20130627
  Serious: Yes (Hospitalization)
  Sender: FDA-Public Use
  Company Number: GB-FRI-1000038280

PATIENT
  Sex: Male
  Weight: 2.2 kg

DRUGS (7)
  1. CITALOPRAM [Suspect]
     Dosage: 20mg once daily
     Route: 064
     Dates: start: 20111004
  2. CHLORPROMAZINE [Suspect]
     Dosage: 25mg once daily
     Route: 064
     Dates: start: 20110922
  3. DIHYDROCODEINE [Suspect]
     Dosage: 60 mg
     Route: 064
  4. FLUOXETINE [Suspect]
     Dosage: 60mg once daily
     Route: 064
     Dates: end: 20111004
  5. OMEPRAZOLE [Suspect]
     Dosage: 20mg once daily
     Route: 064
  6. PROPRANOLOL [Suspect]
     Dosage: 20 mg
     Route: 064
  7. SEROQUEL XL [Suspect]
     Dosage: 400 mg
     Route: 064
     Dates: end: 20110910

REACTIONS (6)
  - Pneumothorax [Unknown]
  - Hypocalcaemia [Unknown]
  - Neonatal respiratory distress syndrome [Unknown]
  - Drug withdrawal syndrome neonatal [Unknown]
  - Premature baby [Unknown]
  - Foetal exposure during pregnancy [Unknown]
